FAERS Safety Report 11757859 (Version 1)
Quarter: 2015Q4

REPORT INFORMATION
  Report Type: Report from Study
  Country: US (occurrence: None)
  Receive Date: 20151117
  Receipt Date: 20151117
  Transmission Date: 20160304
  Serious: Yes (Hospitalization, Other)
  Sender: FDA-Public Use
  Company Number: 2015US003512

PATIENT
  Age: 67 Year
  Sex: Male

DRUGS (6)
  1. ADVAIR DISKUS [Concomitant]
     Active Substance: FLUTICASONE PROPIONATE\SALMETEROL XINAFOATE
  2. GLASSIA [Suspect]
     Active Substance: .ALPHA.1-PROTEINASE INHIBITOR HUMAN
     Indication: ALPHA-1 ANTI-TRYPSIN DEFICIENCY
     Dosage: 60 MG/KG/BODY WEIGHT ~ = 4290 MG,  WEEKLY, INTRAVENOUS
     Route: 042
     Dates: start: 201501
  3. Z-PAK (AZITHROMYCIN) [Concomitant]
  4. PROAIR HFA [Concomitant]
     Active Substance: ALBUTEROL SULFATE
  5. SPIRIVA [Concomitant]
     Active Substance: TIOTROPIUM BROMIDE MONOHYDRATE
  6. PREDNISONE (PREDNISONE) [Concomitant]
     Active Substance: PREDNISONE

REACTIONS (3)
  - Asthma [None]
  - Nasopharyngitis [None]
  - Respiratory failure [None]

NARRATIVE: CASE EVENT DATE: 20150414
